FAERS Safety Report 9033601 (Version 1)
Quarter: 2013Q1

REPORT INFORMATION
  Report Type: Spontaneous
  Country: US (occurrence: US)
  Receive Date: 20130128
  Receipt Date: 20130128
  Transmission Date: 20140127
  Serious: Yes (Life-Threatening)
  Sender: FDA-Public Use
  Company Number: US-JHP PHARMACEUTICALS, LLC-JHP201300011

PATIENT
  Age: 2 Month
  Sex: Male
  Weight: 6 kg

DRUGS (6)
  1. KETALAR [Suspect]
     Indication: INDUCTION OF ANAESTHESIA
     Dosage: 10 MG, VERY SLOW TITRATION X 3 DOSES
     Route: 042
  2. FENTANYL [Suspect]
     Indication: INDUCTION OF ANAESTHESIA
     Dosage: 10 ?G, X 3 DOSES
     Route: 042
  3. SEVOFLURANE [Suspect]
     Indication: INDUCTION OF ANAESTHESIA
     Dosage: 1.4 %,
     Route: 055
  4. SEVOFLURANE [Suspect]
     Dosage: 1.3-2.1%
     Route: 055
  5. ROCURONIUM [Suspect]
     Dosage: 10 MG, UNK
  6. DESFLURANE [Suspect]
     Indication: MAINTENANCE OF ANAESTHESIA
     Dosage: 4.6-7.9%

REACTIONS (2)
  - Pulseless electrical activity [Recovered/Resolved]
  - Off label use [Recovered/Resolved]
